FAERS Safety Report 18464263 (Version 1)
Quarter: 2020Q4

REPORT INFORMATION
  Report Type: Report from Study
  Country: FR (occurrence: FR)
  Receive Date: 20201104
  Receipt Date: 20201104
  Transmission Date: 20210114
  Serious: Yes (Death, Hospitalization, Other)
  Sender: FDA-Public Use
  Company Number: FR-JAZZ-2020-FR-008519

PATIENT

DRUGS (6)
  1. DEFITELIO [Suspect]
     Active Substance: DEFIBROTIDE SODIUM
     Indication: VENOOCCLUSIVE DISEASE
     Dosage: 24.06 MILLIGRAM/KILOGRAM, QD
     Route: 042
     Dates: start: 20200207, end: 20200212
  2. LASILIX [FUROSEMIDE] [Concomitant]
     Active Substance: FUROSEMIDE
     Indication: VENOOCCLUSIVE DISEASE
  3. KEPPRA [Suspect]
     Active Substance: LEVETIRACETAM
     Indication: SEIZURE
     Dosage: UNK
     Route: 048
     Dates: start: 20200311, end: 20200620
  4. SOLUDACTONE [Concomitant]
     Active Substance: CANRENOATE POTASSIUM\TROMETHAMINE
     Indication: VENOOCCLUSIVE DISEASE
  5. DEFITELIO [Suspect]
     Active Substance: DEFIBROTIDE SODIUM
     Dosage: 11.79 MG/KG/DAY
     Route: 042
     Dates: start: 20200213, end: 20200218
  6. CYMEVAN [Suspect]
     Active Substance: GANCICLOVIR
     Indication: CYTOMEGALOVIRUS INFECTION
     Dosage: 200
     Route: 042
     Dates: start: 20200429, end: 20200507

REACTIONS (7)
  - Cerebral toxoplasmosis [Recovering/Resolving]
  - Off label use [Unknown]
  - Hallucination, visual [Unknown]
  - Aphasia [Unknown]
  - General physical health deterioration [Fatal]
  - Multiple organ dysfunction syndrome [Fatal]
  - Acute graft versus host disease [Unknown]

NARRATIVE: CASE EVENT DATE: 20200207
